FAERS Safety Report 11367048 (Version 1)
Quarter: 2015Q3

REPORT INFORMATION
  Report Type: Spontaneous
  Country: US (occurrence: US)
  Receive Date: 20150811
  Receipt Date: 20150811
  Transmission Date: 20151125
  Serious: No
  Sender: FDA-Public Use
  Company Number: US-ELI_LILLY_AND_COMPANY-US201109005553

PATIENT
  Age: 54 Year
  Sex: Male
  Weight: 85.71 kg

DRUGS (6)
  1. AXIRON [Suspect]
     Active Substance: TESTOSTERONE
     Indication: HYPOGONADISM
     Dosage: 60 MG, QD
     Dates: start: 20110712, end: 20111003
  2. ZETIA [Concomitant]
     Active Substance: EZETIMIBE
  3. XANAX [Concomitant]
     Active Substance: ALPRAZOLAM
  4. LOTENSIN [Concomitant]
     Active Substance: BENAZEPRIL HYDROCHLORIDE
  5. NASONEX [Concomitant]
     Active Substance: MOMETASONE FUROATE
  6. CRESTOR [Concomitant]
     Active Substance: ROSUVASTATIN CALCIUM

REACTIONS (1)
  - Blood testosterone free decreased [Unknown]

NARRATIVE: CASE EVENT DATE: 20110811
